FAERS Safety Report 17526396 (Version 1)
Quarter: 2020Q1

REPORT INFORMATION
  Report Type: Spontaneous
  Country: US (occurrence: US)
  Receive Date: 20200303
  Receipt Date: 20200303
  Transmission Date: 20200409
  Serious: No
  Sender: FDA-Public Use
  Company Number: None

PATIENT
  Age: 78 Year
  Sex: Female
  Weight: 82.1 kg

DRUGS (1)
  1. BYSTOLIC [Suspect]
     Active Substance: NEBIVOLOL HYDROCHLORIDE
     Indication: BLOOD PRESSURE MEASUREMENT
     Dosage: ?          QUANTITY:1 PILL;?
     Route: 048
     Dates: end: 20200208

REACTIONS (11)
  - Constipation [None]
  - Depression [None]
  - Confusional state [None]
  - Headache [None]
  - Rash pruritic [None]
  - Balance disorder [None]
  - Peripheral coldness [None]
  - Drug ineffective [None]
  - Insomnia [None]
  - Hot flush [None]
  - Chest discomfort [None]

NARRATIVE: CASE EVENT DATE: 20190110
